FAERS Safety Report 8849613 (Version 1)
Quarter: 2012Q4

REPORT INFORMATION
  Report Type: 
  Country: ES (occurrence: ES)
  Receive Date: 20121019
  Receipt Date: 20121019
  Transmission Date: 20130627
  Serious: Yes (Hospitalization)
  Sender: FDA-Public Use
  Company Number: ES-ELI_LILLY_AND_COMPANY-ES201210003302

PATIENT
  Sex: Female

DRUGS (1)
  1. FORSTEO [Suspect]
     Dosage: UNK
     Dates: start: 20111031

REACTIONS (3)
  - Cerebrovascular accident [Recovered/Resolved]
  - Hyperglycaemia [Unknown]
  - Drug administered at inappropriate site [Unknown]
